FAERS Safety Report 9430621 (Version 1)
Quarter: 2013Q3

REPORT INFORMATION
  Report Type: Report from Study
  Country: US (occurrence: US)
  Receive Date: 20130730
  Receipt Date: 20130730
  Transmission Date: 20140515
  Serious: Yes (Other)
  Sender: FDA-Public Use
  Company Number: US-ABBOTT-13P-163-1092556-00

PATIENT
  Age: 34 Year
  Sex: Male

DRUGS (6)
  1. NIASPAN (COATED) [Suspect]
     Indication: HIGH DENSITY LIPOPROTEIN DECREASED
     Dates: start: 20130520
  2. PERCOCET [Concomitant]
     Indication: ARTHRITIS
  3. MS CONTIN [Concomitant]
     Indication: SPONDYLITIS
  4. NEURONTIN [Concomitant]
     Indication: SPONDYLITIS
  5. SOMA [Concomitant]
     Indication: SPONDYLITIS
  6. LIPITOR [Concomitant]
     Indication: BLOOD CHOLESTEROL INCREASED

REACTIONS (3)
  - Pharyngeal oedema [Recovered/Resolved]
  - Flushing [Not Recovered/Not Resolved]
  - Pruritus [Not Recovered/Not Resolved]
